FAERS Safety Report 8337516-1 (Version None)
Quarter: 2012Q2

REPORT INFORMATION
  Report Type: 
  Country: None (occurrence: None)
  Receive Date: 20120504
  Receipt Date: 20120427
  Transmission Date: 20120825
  Serious: Yes (Death)
  Sender: FDA-Public Use
  Company Number: DE-JNJFOC-20120412076

PATIENT

DRUGS (2)
  1. LOCAL HAEMOSTATICS [Suspect]
     Indication: HAEMOSTASIS
     Route: 061
  2. EVITHROM [Suspect]
     Indication: HAEMOSTASIS
     Route: 061

REACTIONS (1)
  - WRONG TECHNIQUE IN DRUG USAGE PROCESS [None]
